FAERS Safety Report 7189347-6 (Version None)
Quarter: 2010Q4

REPORT INFORMATION
  Report Type: 
  Country: None (occurrence: None)
  Receive Date: 20101222
  Receipt Date: 20100830
  Transmission Date: 20110411
  Serious: No
  Sender: FDA-Public Use
  Company Number: US-AMGEN-TCS422504

PATIENT

DRUGS (1)
  1. ENBREL [Suspect]
     Indication: ANKYLOSING SPONDYLITIS
     Dosage: 25 MG, 2 TIMES/WK
     Route: 058
     Dates: start: 20090617, end: 20100501

REACTIONS (5)
  - ARTHRALGIA [None]
  - BONE PAIN [None]
  - NECK PAIN [None]
  - PAIN IN EXTREMITY [None]
  - SCIATICA [None]
